FAERS Safety Report 4589688-2 (Version None)
Quarter: 2005Q1

REPORT INFORMATION
  Report Type: 
  Country: None (occurrence: None)
  Receive Date: 20050217
  Receipt Date: 20050204
  Transmission Date: 20050727
  Serious: Yes (Hospitalization)
  Sender: FDA-Public Use
  Company Number: 2005AP00858

PATIENT
  Age: 78 Year
  Sex: Female

DRUGS (4)
  1. ATACAND [Suspect]
     Dosage: 8 MG DAILY PO
     Route: 048
     Dates: end: 20040413
  2. FOSAMAX [Suspect]
     Dosage: 40 MG DAILY PO
     Route: 048
  3. ALLOPURINOL [Suspect]
     Dosage: 300 MG DAILY PO
     Route: 048
  4. COLOXYL WITH SENNA [Suspect]
     Dosage: 2 DF DAILY PO
     Route: 048

REACTIONS (3)
  - ABDOMINAL PAIN [None]
  - HAEMATEMESIS [None]
  - VOMITING [None]
